FAERS Safety Report 11062690 (Version 1)
Quarter: 2015Q2

REPORT INFORMATION
  Report Type: Spontaneous
  Country: US (occurrence: US)
  Receive Date: 20150424
  Receipt Date: 20150424
  Transmission Date: 20150821
  Serious: Yes (Other)
  Sender: FDA-Public Use
  Company Number: US-BAYER-2015-162326

PATIENT
  Age: 26 Year
  Sex: Female

DRUGS (1)
  1. MIRENA [Suspect]
     Active Substance: LEVONORGESTREL
     Dosage: 20 MCG/24HR, CONT
     Route: 015
     Dates: start: 20130828, end: 20140709

REACTIONS (5)
  - Pain [None]
  - Abdominal discomfort [None]
  - Injury [None]
  - Emotional distress [None]
  - Uterine perforation [None]

NARRATIVE: CASE EVENT DATE: 20140412
